FAERS Safety Report 4785431-2 (Version None)
Quarter: 2005Q3

REPORT INFORMATION
  Report Type: 
  Country: None (occurrence: None)
  Receive Date: 20050929
  Receipt Date: 20050916
  Transmission Date: 20060218
  Serious: Yes (Other)
  Sender: FDA-Public Use
  Company Number: 2005129752

PATIENT
  Sex: Male

DRUGS (9)
  1. NEURONTIN [Suspect]
     Indication: BACK PAIN
  2. CELEBREX [Suspect]
     Indication: SPINAL COLUMN STENOSIS
  3. DOXAZOSIN (DOXAZOSIN) [Concomitant]
  4. VITAMIN C(VITAMIN C) [Concomitant]
  5. ALLOPURINOL [Concomitant]
  6. ATENOLOL [Concomitant]
  7. RANITIDINE HCL [Concomitant]
  8. ELAVIL [Concomitant]
  9. ASPIRIN [Concomitant]

REACTIONS (7)
  - DRUG INEFFECTIVE [None]
  - HERPES ZOSTER [None]
  - HYPOAESTHESIA [None]
  - INGROWING NAIL [None]
  - PAIN [None]
  - PAIN IN EXTREMITY [None]
  - SPINAL COLUMN STENOSIS [None]
